FAERS Safety Report 23454361 (Version 1)
Quarter: 2024Q1

REPORT INFORMATION
  Report Type: Spontaneous
  Country: ES (occurrence: ES)
  Receive Date: 20240130
  Receipt Date: 20240130
  Transmission Date: 20240410
  Serious: Yes (Other)
  Sender: FDA-Public Use
  Company Number: ES-CELLTRION INC.-2024ES002009

PATIENT

DRUGS (3)
  1. ADALIMUMAB [Suspect]
     Active Substance: ADALIMUMAB\ISOPROPYL ALCOHOL
     Indication: Spinal osteoarthritis
     Dosage: UNK, (40.0 MG C/14 DIAS)
     Route: 058
     Dates: start: 20210707, end: 20231204
  2. TRAMADOL/PARACETAMOL CINFA [Concomitant]
     Indication: Spinal osteoarthritis
     Dosage: UNK, (1.0 COMP C/12 H)
     Route: 048
     Dates: start: 20230809
  3. HYDROCHLOROTHIAZIDE\OLMESARTAN MEDOXOMIL [Concomitant]
     Active Substance: HYDROCHLOROTHIAZIDE\OLMESARTAN MEDOXOMIL
     Indication: Hypertension
     Dosage: UNK, 20.0 MG DE
     Route: 048
     Dates: start: 20231130

REACTIONS (1)
  - Renal failure [Unknown]

NARRATIVE: CASE EVENT DATE: 20230718
